FAERS Safety Report 6813362-2 (Version None)
Quarter: 2010Q3

REPORT INFORMATION
  Report Type: 
  Country: None (occurrence: None)
  Receive Date: 20100701
  Receipt Date: 20100618
  Transmission Date: 20110219
  Serious: Yes (Hospitalization, Other)
  Sender: FDA-Public Use
  Company Number: PHHY2010US18108

PATIENT
  Sex: Female

DRUGS (2)
  1. EXJADE [Suspect]
     Indication: IRON OVERLOAD
     Dosage: 20 MG/ KG DAILY
     Route: 048
     Dates: start: 20060614
  2. EXJADE [Suspect]
     Dosage: 1000 MG DAILY
     Route: 048

REACTIONS (8)
  - ABDOMINAL PAIN [None]
  - ABDOMINAL TENDERNESS [None]
  - ABDOMINAL WALL DISORDER [None]
  - DIVERTICULITIS [None]
  - GASTROINTESTINAL INFLAMMATION [None]
  - INFLAMMATION [None]
  - PYREXIA [None]
  - SPLENECTOMY [None]
